FAERS Safety Report 25322011 (Version 1)
Quarter: 2025Q2

REPORT INFORMATION
  Report Type: Spontaneous
  Country: GB (occurrence: GB)
  Receive Date: 20250516
  Receipt Date: 20250516
  Transmission Date: 20250717
  Serious: Yes (Other)
  Sender: TEVA
  Company Number: None

PATIENT
  Sex: Female

DRUGS (1)
  1. EPIRUBICIN [Suspect]
     Active Substance: EPIRUBICIN
     Indication: Breast cancer
     Dosage: 75MG EVERY 21 DAYS
     Route: 065
     Dates: start: 20250513

REACTIONS (4)
  - Feeling hot [Unknown]
  - Pruritus [Unknown]
  - Swelling face [Unknown]
  - Flushing [Unknown]

NARRATIVE: CASE EVENT DATE: 20250513
